FAERS Safety Report 18387183 (Version 1)
Quarter: 2020Q4

REPORT INFORMATION
  Report Type: Spontaneous
  Country: US (occurrence: US)
  Receive Date: 20201014
  Receipt Date: 20201014
  Transmission Date: 20210114
  Serious: Yes (Hospitalization)
  Sender: FDA-Public Use
  Company Number: None

PATIENT
  Sex: Female

DRUGS (16)
  1. CIMZIA [Suspect]
     Active Substance: CERTOLIZUMAB PEGOL
     Indication: PSORIATIC ARTHROPATHY
     Dosage: ?          OTHER FREQUENCY:WK 0,2.4;?
     Route: 058
     Dates: start: 20200918
  2. CLOTRIMAZOLE. [Concomitant]
     Active Substance: CLOTRIMAZOLE
  3. GABAPENTIN. [Concomitant]
     Active Substance: GABAPENTIN
  4. LEFLUNOMIDE. [Concomitant]
     Active Substance: LEFLUNOMIDE
  5. PREDNISONE. [Concomitant]
     Active Substance: PREDNISONE
  6. OTEZLA [Concomitant]
     Active Substance: APREMILAST
  7. COSENTYX [Concomitant]
     Active Substance: SECUKINUMAB
  8. HYDROCHLOROT [Concomitant]
     Active Substance: HYDROCHLOROTHIAZIDE
  9. DULOXETINE. [Concomitant]
     Active Substance: DULOXETINE
  10. METOPROL TAR [Concomitant]
  11. DICLOFENAC GEL [Concomitant]
     Active Substance: DICLOFENAC
  12. HYDROCO/APAP [Concomitant]
     Active Substance: ACETAMINOPHEN\HYDROCODONE
  13. METQAXALONE [Concomitant]
  14. ENBREL [Concomitant]
     Active Substance: ETANERCEPT
  15. ALBUTEROL AER [Concomitant]
     Active Substance: ALBUTEROL
  16. OLMESA MEDOX [Concomitant]

REACTIONS (4)
  - Fatigue [None]
  - Spinal disorder [None]
  - Spinal operation [None]
  - Condition aggravated [None]
